FAERS Safety Report 18251878 (Version 1)
Quarter: 2020Q3

REPORT INFORMATION
  Report Type: Report from Study
  Country: BR (occurrence: BR)
  Receive Date: 20200910
  Receipt Date: 20200910
  Transmission Date: 20201103
  Serious: Yes (Death)
  Sender: FDA-Public Use
  Company Number: BR-MYLANLABS-2020M1077742

PATIENT
  Age: 74 Year

DRUGS (7)
  1. POLYMYXIN B. [Suspect]
     Active Substance: POLYMYXIN B
     Indication: ANTIBIOTIC THERAPY
     Dosage: PRIOR ANTIBIOTIC THERAPY
     Route: 065
     Dates: start: 2014
  2. TIGECYCLINE. [Concomitant]
     Active Substance: TIGECYCLINE
     Indication: ANTIBIOTIC THERAPY
     Dosage: PRIOR ANTIBIOTIC THERAPY
     Route: 065
     Dates: start: 2014
  3. CIPROFLOXACIN. [Concomitant]
     Active Substance: CIPROFLOXACIN
     Indication: ANTIBIOTIC THERAPY
     Dosage: PRIOR ANTIBIOTIC THERAPY
     Route: 065
     Dates: start: 2014
  4. TEICOPLANIN [Concomitant]
     Active Substance: TEICOPLANIN
     Indication: ANTIBIOTIC THERAPY
     Dosage: PRIOR ANTIBIOTIC THERAPY
     Route: 065
     Dates: start: 2014
  5. VANCOMYCIN [Concomitant]
     Active Substance: VANCOMYCIN
     Indication: ANTIBIOTIC THERAPY
     Dosage: PRIOR ANTIBIOTIC THERAPY
     Route: 065
     Dates: start: 2014
  6. IMIPENEM [Suspect]
     Active Substance: IMIPENEM
     Indication: ANTIBIOTIC THERAPY
     Dosage: PRIOR ANTIBIOTIC THERAPY
     Route: 065
     Dates: start: 2014
  7. MEROPENEM. [Suspect]
     Active Substance: MEROPENEM
     Indication: ANTIBIOTIC THERAPY
     Dosage: PRIOR ANTIBIOTIC THERAPY
     Route: 065
     Dates: start: 2014

REACTIONS (1)
  - Death [Fatal]

NARRATIVE: CASE EVENT DATE: 2014
